FAERS Safety Report 24994782 (Version 1)
Quarter: 2025Q1

REPORT INFORMATION
  Report Type: Spontaneous
  Country: ES (occurrence: ES)
  Receive Date: 20250221
  Receipt Date: 20250221
  Transmission Date: 20250409
  Serious: Yes (Death)
  Sender: RANBAXY
  Company Number: ES-SUN PHARMACEUTICAL INDUSTRIES LTD-2025RR-495523

PATIENT
  Age: 57 Year
  Sex: Male

DRUGS (2)
  1. GEMCITABINE [Suspect]
     Active Substance: GEMCITABINE
     Indication: Adenocarcinoma pancreas
     Route: 065
     Dates: start: 20230201
  2. ABRAXANE [Suspect]
     Active Substance: PACLITAXEL
     Indication: Adenocarcinoma pancreas
     Route: 040
     Dates: start: 20230201

REACTIONS (1)
  - Pancytopenia [Fatal]

NARRATIVE: CASE EVENT DATE: 20230212
